FAERS Safety Report 5850441-0 (Version None)
Quarter: 2008Q3

REPORT INFORMATION
  Report Type: 
  Country: None (occurrence: None)
  Receive Date: 20080819
  Receipt Date: 20080812
  Transmission Date: 20090109
  Serious: Yes (Other)
  Sender: FDA-Public Use
  Company Number: US-PFIZER INC-2008010884

PATIENT
  Sex: Male
  Weight: 123.8 kg

DRUGS (2)
  1. GEODON [Suspect]
     Indication: SCHIZOPHRENIA, PARANOID TYPE
     Dosage: DAILY DOSE:160MG
     Route: 048
  2. LEVOTHYROXINE SODIUM [Concomitant]
     Indication: HYPOTHYROIDISM

REACTIONS (5)
  - BACK PAIN [None]
  - BLOOD URINE PRESENT [None]
  - MEDICATION ERROR [None]
  - TOTAL CHOLESTEROL/HDL RATIO INCREASED [None]
  - UROBILIN URINE PRESENT [None]
